FAERS Safety Report 26055474 (Version 1)
Quarter: 2025Q4

REPORT INFORMATION
  Report Type: Spontaneous
  Country: US (occurrence: US)
  Receive Date: 20251117
  Receipt Date: 20251117
  Transmission Date: 20260117
  Serious: No
  Sender: MISSION PHARMACAL COMPANY
  Company Number: US-Mission Pharmacal Company-2188742

PATIENT
  Age: 60 Year
  Sex: Female

DRUGS (1)
  1. THIOLA EC [Suspect]
     Active Substance: TIOPRONIN
     Indication: Nephrolithiasis
     Dates: start: 20250220

REACTIONS (2)
  - Dry skin [Unknown]
  - Skin wrinkling [Unknown]
